FAERS Safety Report 7281209-9 (Version None)
Quarter: 2011Q1

REPORT INFORMATION
  Report Type: 
  Country: None (occurrence: None)
  Receive Date: 20110208
  Receipt Date: 20110131
  Transmission Date: 20110831
  Serious: Yes (Hospitalization)
  Sender: FDA-Public Use
  Company Number: CHPA2011US02005

PATIENT
  Age: 6 Year
  Sex: Female

DRUGS (2)
  1. TRIAMINIC THIN STRIPS COLD + COUGH [Suspect]
     Indication: COUGH
     Dosage: UNK, UNK
     Route: 048
     Dates: start: 20110101, end: 20110101
  2. TRIAMINIC THIN STRIPS COLD + COUGH [Suspect]
     Indication: NASOPHARYNGITIS
     Dosage: 1 THIN STRIP ONCE
     Route: 048
     Dates: start: 20101101, end: 20101101

REACTIONS (3)
  - FEELING COLD [None]
  - DYSPNOEA [None]
  - LOSS OF CONSCIOUSNESS [None]
